FAERS Safety Report 6217128-6 (Version None)
Quarter: 2009Q2

REPORT INFORMATION
  Report Type: 
  Country: None (occurrence: None)
  Receive Date: 20090606
  Receipt Date: 20090525
  Transmission Date: 20091009
  Serious: Yes (Other)
  Sender: FDA-Public Use
  Company Number: JP-PFIZER INC-2009186990

PATIENT
  Age: 8 Year

DRUGS (4)
  1. AZITHROMYCIN [Suspect]
     Route: 048
  2. MEPTIN [Concomitant]
  3. MUCODYNE [Concomitant]
  4. BROCIN [Concomitant]

REACTIONS (1)
  - LOSS OF CONSCIOUSNESS [None]
